FAERS Safety Report 7724430-5 (Version None)
Quarter: 2011Q3

REPORT INFORMATION
  Report Type: 
  Country: None (occurrence: None)
  Receive Date: 20110829
  Receipt Date: 20110819
  Transmission Date: 20111222
  Serious: Yes (Other)
  Sender: FDA-Public Use
  Company Number: US-006127

PATIENT
  Sex: Female
  Weight: 24.3 kg

DRUGS (4)
  1. B-COMPLEX /00302401/ [Concomitant]
  2. TEV-TROPIN [Suspect]
     Indication: GROWTH HORMONE DEFICIENCY
     Dosage: (0.04 MG/KG SUBCUTANEOUS)
     Route: 058
     Dates: start: 20110217, end: 20110801
  3. CALCIUM WITH VITAMIN D /01233101/ [Concomitant]
  4. LEVOTHYROXINE SODIUM [Concomitant]

REACTIONS (2)
  - MEDULLOBLASTOMA RECURRENT [None]
  - NEOPLASM MALIGNANT [None]
